FAERS Safety Report 21515483 (Version 1)
Quarter: 2022Q4

REPORT INFORMATION
  Report Type: Spontaneous
  Country: US (occurrence: None)
  Receive Date: 20221027
  Receipt Date: 20221027
  Transmission Date: 20230113
  Serious: Yes (Life-Threatening, Hospitalization, Disabling)
  Sender: FDA-Public Use
  Company Number: None

PATIENT
  Age: 36 Year
  Sex: Female
  Weight: 72 kg

DRUGS (1)
  1. MIRENA [Suspect]
     Active Substance: LEVONORGESTREL
     Indication: Contraception
     Dates: start: 20121101

REACTIONS (12)
  - Psychotic disorder [None]
  - Cognitive disorder [None]
  - Job dissatisfaction [None]
  - Feeling abnormal [None]
  - Fatigue [None]
  - Photosensitivity reaction [None]
  - Disturbance in attention [None]
  - Adjustment disorder with depressed mood [None]
  - Panic reaction [None]
  - Emotional disorder [None]
  - Feeling abnormal [None]
  - Speech disorder [None]

NARRATIVE: CASE EVENT DATE: 20200603
